FAERS Safety Report 4997316-7 (Version None)
Quarter: 2006Q1

REPORT INFORMATION
  Report Type: 
  Country: None (occurrence: None)
  Receive Date: 20060315
  Receipt Date: 20060102
  Transmission Date: 20060701
  Serious: Yes (Other)
  Sender: FDA-Public Use
  Company Number: 430557

PATIENT
  Sex: Female

DRUGS (2)
  1. BONIVA [Suspect]
     Indication: DRUG USE FOR UNKNOWN INDICATION
     Dates: start: 20051115
  2. SYNTHROID [Concomitant]

REACTIONS (4)
  - DYSPEPSIA [None]
  - EPISTAXIS [None]
  - INFLUENZA LIKE ILLNESS [None]
  - SINUS DISORDER [None]
